FAERS Safety Report 9360922 (Version 1)
Quarter: 2013Q2

REPORT INFORMATION
  Report Type: Spontaneous
  Country: US (occurrence: None)
  Receive Date: 20130618
  Receipt Date: 20130618
  Transmission Date: 20140414
  Serious: Yes (Hospitalization)
  Sender: FDA-Public Use
  Company Number: ACO_36681_2013

PATIENT
  Sex: Female

DRUGS (7)
  1. AMPYRA (DALFAMPRIDINE) TABLET, 10MG [Suspect]
     Indication: PRODUCT USED FOR UNKNOWN INDICATION
     Dosage: Q 12 HRS
  2. RECLAST (ZOLEDRONIC ACID) [Concomitant]
  3. CELEXA (CITALOPRAM HYDROBROMIDE) [Concomitant]
  4. BACLOFEN (BACLOFEN) [Concomitant]
  5. NAMENDA (MEMANTINE HYDROCHLORIDE) [Concomitant]
  6. MULTIVITAMIN (VITAMINS NOS) [Concomitant]
  7. COPAXONE (GLATIRAMER ACETATE) [Concomitant]

REACTIONS (3)
  - Decubitus ulcer [None]
  - Urinary tract infection [None]
  - Pyrexia [None]
